FAERS Safety Report 8828995 (Version 1)
Quarter: 2012Q4

REPORT INFORMATION
  Report Type: Report from Study
  Country: US (occurrence: US)
  Receive Date: 20121008
  Receipt Date: 20121008
  Transmission Date: 20130627
  Serious: Yes (Other)
  Sender: FDA-Public Use
  Company Number: US-ABBOTT-12P-163-0990335-00

PATIENT
  Weight: 63.56 kg

DRUGS (1)
  1. HUMIRA [Suspect]
     Dates: start: 2012, end: 201208

REACTIONS (1)
  - Precancerous cells present [Unknown]
